FAERS Safety Report 8364423-0 (Version None)
Quarter: 2012Q2

REPORT INFORMATION
  Report Type: 
  Country: None (occurrence: None)
  Receive Date: 20120514
  Receipt Date: 20120430
  Transmission Date: 20120825
  Serious: Yes (Other)
  Sender: FDA-Public Use
  Company Number: 1203-158

PATIENT
  Age: 46 Year
  Sex: Male

DRUGS (1)
  1. EYLEA [Suspect]
     Dosage: INTRAVITREAL

REACTIONS (1)
  - ENDOPHTHALMITIS [None]
